FAERS Safety Report 6253529-8 (Version None)
Quarter: 2009Q3

REPORT INFORMATION
  Report Type: 
  Country: None (occurrence: None)
  Receive Date: 20090701
  Receipt Date: 20090623
  Transmission Date: 20100115
  Serious: Yes (Hospitalization)
  Sender: FDA-Public Use
  Company Number: US-AMGEN-QUU352875

PATIENT
  Sex: Male

DRUGS (6)
  1. ENBREL [Suspect]
     Indication: PSORIASIS
     Dates: start: 20080601, end: 20090601
  2. PRAVACHOL [Concomitant]
  3. UNSPECIFIED BETA BLOCKER [Concomitant]
  4. LISINOPRIL [Concomitant]
  5. INDERAL [Concomitant]
  6. SPIRONOLACTONE [Concomitant]

REACTIONS (4)
  - ASTHENIA [None]
  - CARDIAC FAILURE CONGESTIVE [None]
  - FATIGUE [None]
  - VENTRICULAR TACHYCARDIA [None]
